FAERS Safety Report 4712903-9 (Version None)
Quarter: 2005Q3

REPORT INFORMATION
  Report Type: 
  Country: None (occurrence: None)
  Receive Date: 20050713
  Receipt Date: 20050701
  Transmission Date: 20060218
  Serious: Yes (Life-Threatening, Hospitalization, Other)
  Sender: FDA-Public Use
  Company Number: US-JNJFOC-20050204418

PATIENT
  Sex: Female
  Weight: 70.76 kg

DRUGS (18)
  1. REMICADE [Suspect]
     Indication: RHEUMATOID ARTHRITIS
     Route: 042
  2. MEGA MULTIPLE/CHELATED MINERAL TAB [Concomitant]
     Route: 049
  3. VITAMIN E [Concomitant]
     Route: 049
  4. ALBERTONS HI-CAL [Concomitant]
     Route: 049
  5. NEXIUM [Concomitant]
     Route: 049
  6. DETROL LA [Concomitant]
     Route: 049
  7. FEMHRT [Concomitant]
     Route: 049
  8. FEMHRT [Concomitant]
     Dosage: 1/5 1-5 MG -MCG
     Route: 049
  9. DESYREL [Concomitant]
     Dosage: AT HS
     Route: 049
  10. FOSAMAX [Concomitant]
  11. ZOMETA [Concomitant]
  12. MOBIC [Concomitant]
  13. COUMADIN [Concomitant]
  14. COUMADIN [Concomitant]
  15. PREDNISONE TAB [Concomitant]
  16. NASACORT [Concomitant]
  17. METHOTREXATE [Concomitant]
  18. METHOTREXATE [Concomitant]
     Route: 030

REACTIONS (2)
  - LUNG ADENOCARCINOMA STAGE IV [None]
  - PULMONARY THROMBOSIS [None]
